FAERS Safety Report 6609960-1 (Version None)
Quarter: 2010Q1

REPORT INFORMATION
  Report Type: 
  Country: None (occurrence: None)
  Receive Date: 20100224
  Receipt Date: 20100210
  Transmission Date: 20100710
  Serious: Yes (Life-Threatening, Hospitalization)
  Sender: FDA-Public Use
  Company Number: 2010-00201

PATIENT
  Age: 6 Year
  Sex: Female

DRUGS (2)
  1. CEFTRIAXONE [Suspect]
     Indication: PYREXIA
     Dosage: 50 MG/KG,INTRAVENOUS
     Route: 042
  2. MORPHINE [Concomitant]

REACTIONS (11)
  - BACK PAIN [None]
  - BLOOD LACTATE DEHYDROGENASE INCREASED [None]
  - CARDIO-RESPIRATORY ARREST [None]
  - CHROMATURIA [None]
  - HAEMOGLOBIN DECREASED [None]
  - INCONTINENCE [None]
  - ISCHAEMIC STROKE [None]
  - MOANING [None]
  - OVERDOSE [None]
  - UNRESPONSIVE TO STIMULI [None]
  - VOMITING [None]
